FAERS Safety Report 6438356-0 (Version None)
Quarter: 2009Q4

REPORT INFORMATION
  Report Type: 
  Country: None (occurrence: None)
  Receive Date: 20091112
  Receipt Date: 20091029
  Transmission Date: 20100525
  Serious: Yes (Hospitalization)
  Sender: FDA-Public Use
  Company Number: DE-MYLANLABS-2009S1007379

PATIENT
  Age: 71 Year
  Sex: Female
  Weight: 68 kg

DRUGS (8)
  1. ENALAPRIL [Interacting]
     Indication: HYPERTENSION
     Route: 048
     Dates: start: 20000101, end: 20090107
  2. FURESIS [Suspect]
     Indication: HYPERTENSION
     Route: 048
     Dates: end: 20090107
  3. MICARDIS [Interacting]
     Indication: HYPERTENSION
     Route: 048
     Dates: start: 19980101, end: 20090107
  4. DOPEGYT [Interacting]
     Indication: HYPERTENSION
     Route: 048
     Dates: start: 20000101, end: 20090107
  5. DIGITOXIN INJ [Concomitant]
     Indication: CARDIAC FAILURE
     Route: 048
     Dates: end: 20090107
  6. LEVOTHYROXINE SODIUM [Concomitant]
     Indication: HYPOTHYROIDISM
     Route: 048
     Dates: start: 20080501
  7. ASPIRIN [Concomitant]
     Indication: ISCHAEMIC HEART DISEASE PROPHYLAXIS
     Route: 048
     Dates: start: 20000101
  8. ACTRAPID [Concomitant]
     Indication: TYPE 2 DIABETES MELLITUS
     Dosage: DOSIS/APPLIKATION: 4-0-4 IU
     Route: 058
     Dates: start: 19900101

REACTIONS (5)
  - BLOOD CREATININE INCREASED [None]
  - DEHYDRATION [None]
  - DRUG INTERACTION [None]
  - HYPOTENSION [None]
  - RENAL FAILURE ACUTE [None]
